FAERS Safety Report 9174356 (Version 1)
Quarter: 2013Q1

REPORT INFORMATION
  Report Type: Spontaneous
  Country: GB (occurrence: GB)
  Receive Date: 20130320
  Receipt Date: 20130320
  Transmission Date: 20140127
  Serious: Yes (Life-Threatening, Hospitalization)
  Sender: FDA-Public Use
  Company Number: GB-PFIZER INC-08-AUR-06375

PATIENT
  Age: 43 Year
  Sex: Male

DRUGS (7)
  1. CITALOPRAM [Suspect]
     Dosage: 280 MG (AT ONCE)
     Route: 065
  2. FLUOXETINE HCL [Suspect]
     Dosage: 600 MG (AT ONCE)
     Route: 065
  3. PARACETAMOL [Suspect]
     Dosage: 16 G (AT ONCE)
     Route: 065
  4. AMLODIPINE BESILATE [Suspect]
     Dosage: 560 MG (AT ONCE)
     Route: 065
  5. PERINDOPRIL [Suspect]
     Dosage: 120 MG (AT ONCE)
     Route: 065
  6. ASPIRIN [Suspect]
     Dosage: 7.5 G (AT ONCE)
     Route: 065
  7. FOLIC ACID [Suspect]
     Dosage: 30 TABLETS (AT ONCE)
     Route: 065

REACTIONS (6)
  - Intentional overdose [Recovered/Resolved]
  - Renal failure [Recovered/Resolved]
  - Metabolic acidosis [Recovered/Resolved]
  - Hypokalaemia [Recovered/Resolved]
  - Hypotension [Recovered/Resolved]
  - Urine output decreased [Recovered/Resolved]
